FAERS Safety Report 7380398-5 (Version None)
Quarter: 2011Q1

REPORT INFORMATION
  Report Type: 
  Country: None (occurrence: None)
  Receive Date: 20110329
  Receipt Date: 20091122
  Transmission Date: 20110831
  Serious: Yes (Death, Other)
  Sender: FDA-Public Use
  Company Number: US-BAYER-200939835NA

PATIENT
  Sex: Male
  Weight: 99.773 kg

DRUGS (28)
  1. TRASYLOL [Suspect]
     Indication: CORONARY ARTERY BYPASS
     Dosage: UNK
     Route: 042
     Dates: start: 20070320
  2. PROTAMINE SULFATE [Concomitant]
     Dosage: 90 MG, UNK
     Route: 042
     Dates: start: 20070302, end: 20070302
  3. ZINACEF [Concomitant]
     Dosage: 1.5 G, UNK
     Route: 042
     Dates: start: 20070302, end: 20070302
  4. AMIODARONE HCL [Concomitant]
     Dosage: 150 MG, UNK
     Route: 042
     Dates: start: 20070302, end: 20070302
  5. DIGOXIN [Concomitant]
     Dosage: .25 MG, UNK
     Route: 048
     Dates: start: 19980101
  6. LOVENOX [Concomitant]
     Dosage: 40 MG, BID
     Route: 058
     Dates: start: 20070227
  7. NITROGLYCERIN [Concomitant]
     Dosage: UN1 INCH
     Route: 061
     Dates: start: 20070225
  8. HEPARIN SODIUM [Concomitant]
     Dosage: 20000 U, UNK
     Route: 042
     Dates: start: 20070302, end: 20070302
  9. PREDNISONE [Concomitant]
     Indication: TEMPORAL ARTERITIS
     Dosage: 40 MG, QD
     Route: 048
     Dates: start: 20070225
  10. PLAVIX [Concomitant]
     Dosage: 75 MG, UNK
     Route: 048
  11. ADVIL LIQUI-GELS [Concomitant]
  12. PROTONIX [Concomitant]
     Indication: PROPHYLAXIS AGAINST GASTROINTESTINAL ULCER
     Dosage: 40 MG, QD
     Route: 048
     Dates: start: 20070225
  13. OPTIRAY 350 [Concomitant]
     Dosage: 100CC
     Dates: start: 20070306
  14. TRASYLOL [Suspect]
     Indication: CARDIAC ABLATION
  15. FOLIC ACID [Concomitant]
     Dosage: 1 MG, QD
     Route: 048
     Dates: start: 20070225
  16. OPTIRAY 350 [Concomitant]
     Dosage: 115 ML, UNK
     Route: 042
     Dates: start: 20070228
  17. TRASYLOL [Suspect]
     Indication: PAIN MANAGEMENT
  18. AMICAR [Concomitant]
     Dosage: 250 MG, UNK
     Dates: start: 20070303
  19. LEVAQUIN [Concomitant]
     Indication: PNEUMONITIS
     Dosage: UNK
     Dates: start: 20070225
  20. DILTIAZEM HCL [Concomitant]
     Dosage: 40 MG BOLUS INCREMENTAL DOSING PLUS DRIP
     Route: 042
  21. AMICAR [Concomitant]
     Dosage: UNK
     Dates: start: 20070302, end: 20070302
  22. INSULIN [Concomitant]
     Dosage: UNK
     Route: 042
     Dates: start: 20070302, end: 20070302
  23. COREG [Concomitant]
     Dosage: 6.25 MG - 25 MG
     Dates: start: 19980101
  24. GLIPIZIDE [Concomitant]
     Indication: DIABETES MELLITUS
     Dosage: 5 MG, QD
     Route: 048
     Dates: start: 19950101
  25. ASPIRIN [Concomitant]
  26. LABETALOL [Concomitant]
     Dosage: 5 MG, UNK
     Route: 042
     Dates: start: 20070302, end: 20070302
  27. METHOTREXATE [Concomitant]
     Indication: TEMPORAL ARTERITIS
     Dosage: 12.5 MG, UNK
     Route: 048
     Dates: start: 20070228
  28. SOLU-MEDROL [Concomitant]
     Dosage: 125 MG, UNK
     Route: 042
     Dates: start: 20070302, end: 20070302

REACTIONS (13)
  - STRESS [None]
  - UNEVALUABLE EVENT [None]
  - RENAL FAILURE [None]
  - ANXIETY [None]
  - MULTI-ORGAN FAILURE [None]
  - INJURY [None]
  - ANHEDONIA [None]
  - DEATH [None]
  - RENAL IMPAIRMENT [None]
  - FEAR [None]
  - RENAL INJURY [None]
  - EMOTIONAL DISTRESS [None]
  - PAIN [None]
